FAERS Safety Report 11009319 (Version 3)
Quarter: 2015Q2

REPORT INFORMATION
  Report Type: Report from Study
  Country: US (occurrence: US)
  Receive Date: 20150410
  Receipt Date: 20150511
  Transmission Date: 20150821
  Serious: Yes (Death, Life-Threatening, Hospitalization)
  Sender: FDA-Public Use
  Company Number: US-SA-2015SA023712

PATIENT
  Age: 67 Year
  Sex: Male

DRUGS (26)
  1. FLUDARABINE [Concomitant]
     Active Substance: FLUDARABINE PHOSPHATE
     Dates: start: 201412
  2. DOCUSATE SODIUM. [Concomitant]
     Active Substance: DOCUSATE SODIUM
     Indication: CONSTIPATION
     Route: 048
     Dates: start: 20150112, end: 20150221
  3. DIPHENHYDRAMINE [Concomitant]
     Active Substance: DIPHENHYDRAMINE
     Indication: PREMEDICATION
     Route: 048
     Dates: start: 20141230, end: 20150325
  4. LORAZEPAM. [Concomitant]
     Active Substance: LORAZEPAM
     Route: 048
     Dates: start: 201412
  5. FOLIC ACID. [Concomitant]
     Active Substance: FOLIC ACID
     Indication: SUPPLEMENTATION THERAPY
     Route: 048
     Dates: start: 20150109, end: 20150221
  6. MEGESTROL [Concomitant]
     Active Substance: MEGESTROL
     Indication: DECREASED APPETITE
     Route: 048
     Dates: start: 20150216, end: 20150221
  7. MELPHALAN [Concomitant]
     Active Substance: MELPHALAN
     Dates: start: 201412
  8. ACETAMINOPHEN. [Concomitant]
     Active Substance: ACETAMINOPHEN
     Indication: PREMEDICATION
     Route: 048
     Dates: start: 20141230, end: 20150222
  9. OXYCODONE [Concomitant]
     Active Substance: OXYCODONE
     Indication: MUSCULOSKELETAL PAIN
     Route: 048
     Dates: start: 20141221, end: 20150221
  10. PENTAMIDINE [Concomitant]
     Active Substance: PENTAMIDINE
     Indication: PROPHYLAXIS
     Route: 055
     Dates: start: 20150130, end: 20150324
  11. PLERIXAFOR [Suspect]
     Active Substance: PLERIXAFOR
     Indication: HAEMATOPOIETIC STEM CELL MOBILISATION
     Route: 065
     Dates: start: 20141226
  12. ONDANSETRON [Concomitant]
     Active Substance: ONDANSETRON
     Route: 048
     Dates: start: 201412
  13. POTASSIUM CHLORIDE. [Concomitant]
     Active Substance: POTASSIUM CHLORIDE
     Indication: HYPOKALAEMIA
     Route: 042
     Dates: start: 20141227, end: 20150313
  14. LORAZEPAM. [Concomitant]
     Active Substance: LORAZEPAM
     Indication: NAUSEA
     Route: 048
     Dates: start: 20141225, end: 20150221
  15. PROCHLORPERAZINE. [Concomitant]
     Active Substance: PROCHLORPERAZINE
     Indication: NAUSEA
     Route: 048
     Dates: start: 20141222, end: 20150221
  16. PROCHLORPERAZINE. [Concomitant]
     Active Substance: PROCHLORPERAZINE
     Route: 048
     Dates: start: 201412
  17. ONDANSETRON [Concomitant]
     Active Substance: ONDANSETRON
     Indication: NAUSEA
     Route: 048
     Dates: start: 20141223, end: 20150221
  18. ONDANSETRON [Concomitant]
     Active Substance: ONDANSETRON
     Indication: VOMITING
     Route: 048
     Dates: start: 20141223, end: 20150221
  19. OMEPRAZOLE. [Concomitant]
     Active Substance: OMEPRAZOLE
     Indication: GASTROOESOPHAGEAL REFLUX DISEASE
     Route: 048
     Dates: start: 20150216, end: 20150221
  20. INSULIN ASPART [Concomitant]
     Active Substance: INSULIN ASPART
     Indication: DIABETES MELLITUS
     Dosage: 1-5 UNITS, QHS
     Route: 058
     Dates: start: 20141227, end: 20150326
  21. PROCHLORPERAZINE. [Concomitant]
     Active Substance: PROCHLORPERAZINE
     Indication: VOMITING
     Route: 048
     Dates: start: 20141222, end: 20150221
  22. MEGESTROL [Concomitant]
     Active Substance: MEGESTROL
     Route: 048
     Dates: start: 20150217
  23. LORAZEPAM. [Concomitant]
     Active Substance: LORAZEPAM
     Indication: VOMITING
     Route: 048
     Dates: start: 20141225, end: 20150221
  24. CHOLECALCIFEROL [Concomitant]
     Active Substance: CHOLECALCIFEROL
     Indication: VITAMIN SUPPLEMENTATION
     Dosage: DOSE:1000 UNIT(S)
     Route: 048
     Dates: start: 20150109, end: 20150221
  25. FLUCONAZOLE. [Concomitant]
     Active Substance: FLUCONAZOLE
     Indication: INFECTION PROPHYLAXIS
     Route: 048
     Dates: start: 20150109, end: 20150221
  26. LOPERAMIDE [Concomitant]
     Active Substance: LOPERAMIDE
     Indication: DIARRHOEA
     Route: 048
     Dates: start: 20150106, end: 20150221

REACTIONS (2)
  - Acute graft versus host disease [Recovered/Resolved]
  - Acute respiratory distress syndrome [Fatal]

NARRATIVE: CASE EVENT DATE: 20150219
